FAERS Safety Report 8602428 (Version 2)
Quarter: 2013Q2

REPORT INFORMATION
  Report Type: Spontaneous
  Country: US (occurrence: US)
  Receive Date: 20120607
  Receipt Date: 20130617
  Transmission Date: 20140414
  Serious: Yes (Hospitalization)
  Sender: FDA-Public Use
  Company Number: US-ASTRAZENECA-2012SE34753

PATIENT
  Sex: Male

DRUGS (23)
  1. NEXIUM [Suspect]
     Indication: GASTROOESOPHAGEAL REFLUX DISEASE
     Dosage: 1 PER DAY
     Route: 048
     Dates: start: 20110819
  2. TUMS [Concomitant]
  3. METOPROLOL [Concomitant]
     Dates: start: 20091228
  4. PROMETHAZINE [Concomitant]
     Dates: start: 20100308
  5. TRAZODONE [Concomitant]
  6. DIGOXIN [Concomitant]
     Dates: start: 20100824
  7. HYDROCO/APAP [Concomitant]
     Dosage: 10 - 500MG
     Dates: start: 20110704
  8. SMZ/TMP DS [Concomitant]
     Dosage: 800 - 160
     Dates: start: 20110704
  9. DIAZEPAM [Concomitant]
     Dates: start: 20110705
  10. ADVAIR DISKU [Concomitant]
     Dosage: 250/50
     Dates: start: 20110705
  11. PROAIR HFA [Concomitant]
     Dates: start: 20110705
  12. FLUTICASONE [Concomitant]
     Dates: start: 20110705
  13. OXCARBAZEPINE [Concomitant]
     Dates: start: 20110711
  14. NAPROXEN [Concomitant]
     Dates: start: 20110711
  15. FLUCONAZOLE [Concomitant]
     Dates: start: 20110713
  16. MEGESTROL AC [Concomitant]
     Dates: start: 20110713
  17. ONDANSETRON [Concomitant]
     Dates: start: 20110713
  18. SUBOXONE [Concomitant]
     Dosage: 8 - 2 MG
     Dates: start: 20110715
  19. SUMATRIPTAN [Concomitant]
     Dates: start: 20110715
  20. ZYPREXA [Concomitant]
     Dates: start: 20110723
  21. PIROXICAM [Concomitant]
     Dates: start: 20110725
  22. RANITIDINE [Concomitant]
     Dates: start: 20110725
  23. LEVOTHYROXINE [Concomitant]
     Dates: start: 20110823

REACTIONS (12)
  - Diabetes mellitus [Unknown]
  - Prostate cancer [Unknown]
  - Chest pain [Unknown]
  - Feeling abnormal [Unknown]
  - Dyspnoea [Unknown]
  - Cardiac disorder [Unknown]
  - Osteoporosis [Unknown]
  - Back pain [Unknown]
  - Androgen deficiency [Unknown]
  - Bone pain [Unknown]
  - Multiple fractures [Unknown]
  - Depression [Unknown]
